FAERS Safety Report 6244452-3 (Version None)
Quarter: 2009Q2

REPORT INFORMATION
  Report Type: 
  Country: None (occurrence: None)
  Receive Date: 20090625
  Receipt Date: 20090615
  Transmission Date: 20091009
  Serious: Yes (Other)
  Sender: FDA-Public Use
  Company Number: -BAXTER-2009BH010024

PATIENT

DRUGS (2)
  1. GAMMAGARD LIQUID [Suspect]
     Indication: PEMPHIGUS
     Route: 042
  2. GAMMAGARD LIQUID [Suspect]
     Indication: OFF LABEL USE
     Route: 042

REACTIONS (2)
  - ANAPHYLACTIC REACTION [None]
  - DRUG INTOLERANCE [None]
